FAERS Safety Report 15556862 (Version 2)
Quarter: 2018Q4

REPORT INFORMATION
  Report Type: Report from Study
  Country: IT (occurrence: IT)
  Receive Date: 20181026
  Receipt Date: 20181210
  Transmission Date: 20190205
  Serious: Yes (Death, Hospitalization, Disabling)
  Sender: FDA-Public Use
  Company Number: IT-JNJFOC-20181024170

PATIENT
  Age: 63 Year
  Sex: Female

DRUGS (3)
  1. DEXAMETHASONE. [Concomitant]
     Active Substance: DEXAMETHASONE
     Indication: PREMEDICATION
     Route: 042
  2. DEXAMETHASONE. [Concomitant]
     Active Substance: DEXAMETHASONE
     Indication: PREMEDICATION
     Route: 048
  3. ET-743 [Suspect]
     Active Substance: TRABECTEDIN
     Indication: UTERINE LEIOMYOSARCOMA
     Dosage: 24-HOUR INFUSION, CYCLE 1-2
     Route: 042
     Dates: start: 20141103, end: 20141125

REACTIONS (5)
  - Alanine aminotransferase [Not Recovered/Not Resolved]
  - Cholecystitis acute [Recovered/Resolved]
  - Blood alkaline phosphatase [Not Recovered/Not Resolved]
  - Aspartate aminotransferase [Not Recovered/Not Resolved]
  - Gamma-glutamyltransferase [Not Recovered/Not Resolved]

NARRATIVE: CASE EVENT DATE: 20141130
